FAERS Safety Report 20448641 (Version 1)
Quarter: 2022Q1

REPORT INFORMATION
  Report Type: Spontaneous
  Country: AT (occurrence: AT)
  Receive Date: 20220209
  Receipt Date: 20220209
  Transmission Date: 20220423
  Serious: Yes (Hospitalization, Other)
  Sender: FDA-Public Use
  Company Number: AT-MLMSERVICE-20220128-3333099-1

PATIENT
  Sex: Female

DRUGS (5)
  1. FLUOXETINE [Suspect]
     Active Substance: FLUOXETINE HYDROCHLORIDE
     Indication: Mixed anxiety and depressive disorder
  2. TRAZODONE HYDROCHLORIDE [Suspect]
     Active Substance: TRAZODONE HYDROCHLORIDE
     Indication: Mixed anxiety and depressive disorder
     Dosage: EVERY EVENING.
  3. BISOPROLOL [Concomitant]
     Active Substance: BISOPROLOL
     Indication: Hypertension
  4. VALSARTAN [Concomitant]
     Active Substance: VALSARTAN
     Indication: Hypertension
  5. LAVENDER OIL [Concomitant]
     Active Substance: LAVENDER OIL

REACTIONS (3)
  - Stress [Recovered/Resolved]
  - Postural tremor [Recovered/Resolved]
  - Loss of personal independence in daily activities [Recovered/Resolved]
